FAERS Safety Report 8268785-4 (Version None)
Quarter: 2012Q2

REPORT INFORMATION
  Report Type: 
  Country: None (occurrence: None)
  Receive Date: 20120409
  Receipt Date: 20120409
  Transmission Date: 20120825
  Serious: Yes (Hospitalization)
  Sender: FDA-Public Use
  Company Number: None

PATIENT
  Age: 93 Year
  Sex: Male
  Weight: 81.8 kg

DRUGS (1)
  1. ENOXAPARIN [Suspect]
     Dosage: 40MG
     Route: 058

REACTIONS (3)
  - HAEMORRHAGE [None]
  - LACERATION [None]
  - HAEMATOMA [None]
